FAERS Safety Report 4673746-8 (Version None)
Quarter: 2005Q2

REPORT INFORMATION
  Report Type: 
  Country: None (occurrence: None)
  Receive Date: 20050524
  Receipt Date: 20050512
  Transmission Date: 20051028
  Serious: Yes (Hospitalization)
  Sender: FDA-Public Use
  Company Number: 2005058438

PATIENT
  Age: 60 Year
  Sex: Female

DRUGS (1)
  1. BEXTRA [Suspect]
     Indication: INFLAMMATION
     Dosage: 400 MG (200 MG, 2 IN 1 D), ORAL
     Route: 048
     Dates: start: 20050104, end: 20050110

REACTIONS (6)
  - AUTOIMMUNE HEPATITIS [None]
  - BLOOD URINE PRESENT [None]
  - EPISTAXIS [None]
  - HAEMOLYTIC ANAEMIA [None]
  - INFECTION [None]
  - INSOMNIA [None]
